FAERS Safety Report 11383456 (Version 1)
Quarter: 2015Q3

REPORT INFORMATION
  Report Type: Spontaneous
  Country: US (occurrence: US)
  Receive Date: 20150814
  Receipt Date: 20150814
  Transmission Date: 20151125
  Serious: Yes (Hospitalization, Other)
  Sender: FDA-Public Use
  Company Number: PHEH2015US015339

PATIENT
  Age: 47 Year
  Sex: Female

DRUGS (22)
  1. ONDANSETRON HCL [Concomitant]
     Active Substance: ONDANSETRON HYDROCHLORIDE
     Indication: PRODUCT USED FOR UNKNOWN INDICATION
     Dosage: 1 DF, Q8H (PRN)
     Route: 048
     Dates: start: 20131018
  2. OXYCODONE HCL [Concomitant]
     Active Substance: OXYCODONE HYDROCHLORIDE
     Indication: PAIN
     Dosage: 1 TO 2 TABLETS, EVERY 4 TO 6 HOURS, PRN
     Route: 048
     Dates: start: 20131016
  3. OXYCODONE HCL [Concomitant]
     Active Substance: OXYCODONE HYDROCHLORIDE
     Dosage: 5 MG, Q4H
     Route: 048
  4. OXYCODONE HCL [Concomitant]
     Active Substance: OXYCODONE HYDROCHLORIDE
     Dosage: 5 MG, 2 TO 3 TIMES DAILY
     Route: 048
  5. ZOFRAN [Concomitant]
     Active Substance: ONDANSETRON HYDROCHLORIDE
     Indication: NAUSEA
     Dosage: 8 MG, Q8H (PRN)
     Route: 065
  6. LIQUID CALCIUM//CALCIUM [Concomitant]
     Indication: METASTASES TO BONE
     Route: 065
  7. VITAMIN D [Concomitant]
     Active Substance: CHOLECALCIFEROL
     Indication: METASTASES TO BONE
     Route: 065
  8. ABRAXANE//PACLITAXEL [Concomitant]
     Indication: BREAST CANCER
     Dosage: GIVEN WEEKLY X 3 WEEKS, THEN ONE WEEK OFF
     Route: 065
  9. PALBOCICLIB [Concomitant]
     Active Substance: PALBOCICLIB
     Indication: BREAST CANCER
     Dosage: 1 DF, QD
     Route: 048
     Dates: start: 20150723
  10. IBUPROFEN. [Concomitant]
     Active Substance: IBUPROFEN
     Indication: PRODUCT USED FOR UNKNOWN INDICATION
     Dosage: 2 DF, Q5H (ONE TIME SHE TOOK THREE TABLETS)
     Route: 048
     Dates: start: 20131016
  11. NYSTATIN. [Concomitant]
     Active Substance: NYSTATIN
     Indication: PRODUCT USED FOR UNKNOWN INDICATION
     Dosage: 100000 U/ML, UNK
     Route: 048
     Dates: start: 20150126
  12. ARIMIDEX [Concomitant]
     Active Substance: ANASTROZOLE
     Indication: PRODUCT USED FOR UNKNOWN INDICATION
     Dosage: UNK
     Route: 065
     Dates: start: 201403
  13. HALAVEN [Suspect]
     Active Substance: ERIBULIN MESYLATE
     Indication: PRODUCT USED FOR UNKNOWN INDICATION
     Route: 065
     Dates: start: 201503, end: 201504
  14. ATIVAN [Concomitant]
     Active Substance: LORAZEPAM
     Indication: ANXIETY
     Dosage: 1 DF, QD (AS NEEDED)
     Route: 048
     Dates: start: 20131104
  15. FASLODEX [Concomitant]
     Active Substance: FULVESTRANT
     Indication: PRODUCT USED FOR UNKNOWN INDICATION
     Dosage: UNK
     Route: 065
     Dates: start: 201403, end: 201502
  16. LUPRON [Concomitant]
     Active Substance: LEUPROLIDE ACETATE
     Indication: PRODUCT USED FOR UNKNOWN INDICATION
     Dosage: 3.75 MG, QMO (MONTHLY)
     Route: 030
     Dates: start: 20140321, end: 201502
  17. FEMARA [Concomitant]
     Active Substance: LETROZOLE
     Indication: PRODUCT USED FOR UNKNOWN INDICATION
     Dosage: 1 DF, QD
     Route: 048
     Dates: start: 20150729
  18. OXYCODONE HCL [Concomitant]
     Active Substance: OXYCODONE HYDROCHLORIDE
     Dosage: 5 MG (2 TO 3 TABS), PRN
     Route: 048
  19. TAXOL [Concomitant]
     Active Substance: PACLITAXEL
     Indication: PRODUCT USED FOR UNKNOWN INDICATION
     Route: 065
  20. PROCHLORPERAZINE MALEATE. [Concomitant]
     Active Substance: PROCHLORPERAZINE MALEATE
     Indication: NAUSEA
     Dosage: 1 DF, EVERY 4 TO 6 HOURS
     Route: 048
     Dates: start: 20131018
  21. LASIX [Concomitant]
     Active Substance: FUROSEMIDE
     Indication: OEDEMA PERIPHERAL
     Dosage: 10 MG, QD (PRN)
     Route: 065
  22. ZOMETA [Suspect]
     Active Substance: ZOLEDRONIC ACID
     Indication: METASTASES TO BONE
     Dosage: QMO (ON A MONTHLY BASIS)
     Route: 065

REACTIONS (29)
  - Inflammatory carcinoma of the breast [Unknown]
  - Metastases to bone [Unknown]
  - Eye swelling [Unknown]
  - Fatigue [Unknown]
  - Skin hypertrophy [Unknown]
  - Blood glucose increased [Unknown]
  - Radicular pain [Unknown]
  - Pyrexia [Unknown]
  - Neutropenia [Unknown]
  - Peripheral swelling [Unknown]
  - Obesity [Unknown]
  - Retracted nipple [Unknown]
  - Lymphadenopathy [Recovered/Resolved]
  - Hypoaesthesia [Unknown]
  - Fibrocystic breast disease [Unknown]
  - Erythema [Recovering/Resolving]
  - Breast disorder [Unknown]
  - Arthralgia [Unknown]
  - Metastases to meninges [Unknown]
  - Breast pain [Unknown]
  - Metastases to spine [Unknown]
  - Metastases to pelvis [Unknown]
  - Lymphoedema [Unknown]
  - Hypermetabolism [Unknown]
  - Breast swelling [Recovering/Resolving]
  - Infection [Unknown]
  - Metastases to central nervous system [Unknown]
  - Protein total increased [Unknown]
  - Uterine leiomyoma [Unknown]

NARRATIVE: CASE EVENT DATE: 201501
